FAERS Safety Report 5192179-1 (Version None)
Quarter: 2006Q4

REPORT INFORMATION
  Report Type: 
  Country: None (occurrence: None)
  Receive Date: 20061220
  Receipt Date: 20061205
  Transmission Date: 20070319
  Serious: Yes (Hospitalization)
  Sender: FDA-Public Use
  Company Number: 2006S1009578

PATIENT
  Age: 38 Year
  Sex: Female
  Weight: 106.5953 kg

DRUGS (8)
  1. FENTANYL TRANSDERMAL SYSTEM [Suspect]
     Indication: BACK PAIN
     Dosage: 25 UG/HR; 1X; TDER
     Route: 062
     Dates: start: 20050805, end: 20050806
  2. FENTANYL TRANSDERMAL SYSTEM [Suspect]
     Indication: NECK PAIN
     Dosage: 25 UG/HR; 1X; TDER
     Route: 062
     Dates: start: 20050805, end: 20050806
  3. MELOXICAM (CON.) [Concomitant]
  4. METAXALONE (CON.) [Concomitant]
  5. VICODIN (CON.) [Concomitant]
  6. ESTRADIOL (CON.) [Concomitant]
  7. ESTRATEST HS (CON.) [Concomitant]
  8. OLMESARTAN MEDOXOMIL (CON.) [Concomitant]

REACTIONS (12)
  - ABASIA [None]
  - ASTHENIA [None]
  - BRADYCARDIA [None]
  - CHEST PAIN [None]
  - COLD SWEAT [None]
  - DIZZINESS [None]
  - DYSPNOEA [None]
  - DYSSTASIA [None]
  - FEELING HOT [None]
  - LETHARGY [None]
  - PRESYNCOPE [None]
  - TREMOR [None]
